FAERS Safety Report 21159242 (Version 1)
Quarter: 2022Q3

REPORT INFORMATION
  Report Type: Spontaneous
  Country: US (occurrence: US)
  Receive Date: 20220802
  Receipt Date: 20220802
  Transmission Date: 20221027
  Serious: Yes (Hospitalization)
  Sender: FDA-Public Use
  Company Number: US-JNJFOC-20220750803

PATIENT
  Age: 36 Year
  Sex: Female

DRUGS (1)
  1. CHILDRENS BENADRYL DYE-FREE ALLERGY [Suspect]
     Active Substance: DIPHENHYDRAMINE HYDROCHLORIDE
     Indication: Euphoric mood
     Dosage: 200 PILLS OR HUNDRED/CONSUMER DRANK 3 FULL BOTTLES NOT PROVIDED?A COUPLE OF WEEKS AGO
     Route: 065
     Dates: start: 2022

REACTIONS (1)
  - Drug abuse [Unknown]

NARRATIVE: CASE EVENT DATE: 20220101
